FAERS Safety Report 25452670 (Version 3)
Quarter: 2025Q3

REPORT INFORMATION
  Report Type: Spontaneous
  Country: US (occurrence: US)
  Receive Date: 20250618
  Receipt Date: 20250916
  Transmission Date: 20251020
  Serious: No
  Sender: BRISTOL-MYERS SQUIBB COMPANY
  Company Number: US-EXELIXIS-EXL-2025-008788

PATIENT
  Age: 58 Year
  Sex: Female

DRUGS (3)
  1. OPDIVO [Suspect]
     Active Substance: NIVOLUMAB
     Indication: Renal cell carcinoma
     Dosage: UNK, Q4WEEKS
     Dates: start: 20250501
  2. CABOMETYX [Suspect]
     Active Substance: CABOZANTINIB S-MALATE
     Indication: Renal cell carcinoma
     Dates: start: 20250501
  3. CABOMETYX [Suspect]
     Active Substance: CABOZANTINIB S-MALATE
     Dosage: 40 MG, QD

REACTIONS (9)
  - Taste disorder [Unknown]
  - Fatigue [Unknown]
  - Blood pressure increased [Unknown]
  - Blister [Recovered/Resolved]
  - Pruritus [Unknown]
  - Oral mucosal blistering [Unknown]
  - Gingival blister [Unknown]
  - Somnolence [Unknown]
  - Tongue blistering [Unknown]
